FAERS Safety Report 4973009-7 (Version None)
Quarter: 2006Q2

REPORT INFORMATION
  Report Type: 
  Country: None (occurrence: None)
  Receive Date: 20060414
  Receipt Date: 20060403
  Transmission Date: 20061013
  Serious: Yes (Other)
  Sender: FDA-Public Use
  Company Number: RU-GLAXOSMITHKLINE-B0420112A

PATIENT
  Age: 20 Year
  Sex: Male

DRUGS (2)
  1. PAXIL [Suspect]
     Dosage: 20MG PER DAY
     Route: 048
     Dates: start: 20060301
  2. UNKNOWN DRUG [Concomitant]

REACTIONS (3)
  - ANXIETY [None]
  - HYPERTENSIVE CRISIS [None]
  - TACHYCARDIA [None]
